FAERS Safety Report 8807171 (Version 4)
Quarter: 2012Q4

REPORT INFORMATION
  Report Type: Report from Study
  Country: TW (occurrence: TW)
  Receive Date: 20120925
  Receipt Date: 20121029
  Transmission Date: 20130627
  Serious: Yes (Death, Life-Threatening, Hospitalization)
  Sender: FDA-Public Use
  Company Number: TW-CELGENEUS-153-CCAZA-12092744

PATIENT
  Age: 86 Year
  Sex: Male
  Weight: 53 kg

DRUGS (25)
  1. AZACITIDINE INJECTABLE [Suspect]
     Indication: ACUTE MYELOID LEUKAEMIA
     Dosage: 75 milligram/sq. meter
     Route: 058
     Dates: start: 20120905, end: 20120911
  2. EVAC ENEMA [Concomitant]
     Indication: CONSTIPATION
     Dosage: 118ml BOT
     Route: 050
     Dates: start: 20120831, end: 20120901
  3. EVAC ENEMA [Concomitant]
     Dosage: BOT
     Route: 054
     Dates: start: 20120924, end: 20120925
  4. EVAC ENEMA [Concomitant]
     Dosage: BOT
     Route: 054
     Dates: start: 20120906, end: 20120907
  5. MEGESTROL [Concomitant]
     Indication: DECREASED APPETITE
     Dosage: 40mg/ml 120ml
     Route: 048
     Dates: start: 20120901, end: 20120917
  6. CELEBREX [Concomitant]
     Indication: RIGHT OTITIS EXTERNA
     Dosage: 200
     Route: 048
     Dates: start: 20120901, end: 20120903
  7. SENOKOT [Concomitant]
     Indication: CONSTIPATION
     Dosage: 7.5mg
     Route: 048
     Dates: start: 20120901, end: 20120912
  8. ATIVAN [Concomitant]
     Indication: INSOMNIA
     Dosage: 0.5mg
     Route: 048
     Dates: start: 20120901, end: 20120912
  9. ULTRACET [Concomitant]
     Indication: RIGHT OTITIS EXTERNA
     Dosage: 4 Tablet
     Route: 048
     Dates: start: 20120901, end: 20120902
  10. DEPYRETIN [Concomitant]
     Indication: RIGHT OTITIS EXTERNA
     Dosage: 2000 Milligram
     Route: 048
     Dates: start: 20120908, end: 20120922
  11. DEPYRETIN [Concomitant]
     Route: 048
     Dates: start: 20120908, end: 20120909
  12. SCANOL [Concomitant]
     Indication: FEVER
     Route: 048
     Dates: start: 20120831, end: 20120901
  13. SCANOL [Concomitant]
     Dosage: 250 Milligram
     Route: 048
     Dates: start: 20120901, end: 20120903
  14. SCANOL [Concomitant]
     Dosage: 500 mg
     Route: 048
     Dates: start: 20120908, end: 20120916
  15. SCANOL [Concomitant]
     Dosage: 500 mg
     Route: 048
     Dates: start: 20120926, end: 20121004
  16. AUGMENTIN [Concomitant]
     Indication: RIGHT OTITIS EXTERNA
     Dosage: 2000 Milligram
     Route: 048
     Dates: start: 20120903, end: 20120908
  17. OXACILLIN [Concomitant]
     Indication: SEPSIS
     Dosage: 6000 Milligram
     Route: 041
     Dates: start: 20120831, end: 20120901
  18. CEFMETAZOLE [Concomitant]
     Indication: SEPSIS
     Dosage: 6000 Milligram
     Route: 041
     Dates: start: 20120831
  19. CEFMETAZOLE [Concomitant]
     Route: 041
     Dates: start: 20120901, end: 20120902
  20. CEFMETAZOLE [Concomitant]
     Dosage: 6000 Milligram
     Route: 041
     Dates: start: 20120901, end: 20120902
  21. TARIVID [Concomitant]
     Indication: DRUG USE FOR UNKNOWN INDICATION
     Dosage: DBOT 3 mg/ml 5 ml
     Route: 047
     Dates: start: 20120903, end: 20120914
  22. NORMACOL PLUS [Concomitant]
     Indication: DRUG USE FOR UNKNOWN INDICATION
     Dosage: WP
     Route: 065
     Dates: start: 20120905, end: 20120906
  23. LACTULOSE [Concomitant]
     Indication: DRUG USE FOR UNKNOWN INDICATION
     Dosage: BOT
     Route: 048
     Dates: start: 20120906, end: 20120914
  24. FLUCONAZOLE [Concomitant]
     Indication: DRUG USE FOR UNKNOWN INDICATION
     Dosage: 150 mg
     Route: 048
     Dates: start: 20120910, end: 20120914
  25. PULMICORT [Concomitant]
     Indication: DRUG USE FOR UNKNOWN INDICATION
     Dosage: BOT Aq64 mcq/d 120 d
     Route: 045
     Dates: start: 20120911, end: 20120912

REACTIONS (1)
  - Pneumonia [Fatal]
